FAERS Safety Report 14363717 (Version 2)
Quarter: 2018Q1

REPORT INFORMATION
  Report Type: Spontaneous
  Country: US (occurrence: US)
  Receive Date: 20180108
  Receipt Date: 20180205
  Transmission Date: 20180509
  Serious: Yes (Life-Threatening, Hospitalization, Disabling)
  Sender: FDA-Public Use
  Company Number: US-JNJFOC-20180104880

PATIENT
  Age: 70 Year
  Sex: Male

DRUGS (18)
  1. FLUOXETINE HCL [Concomitant]
     Active Substance: FLUOXETINE HYDROCHLORIDE
     Route: 048
  2. TRAZODONE HYDROCHLORIDE. [Concomitant]
     Active Substance: TRAZODONE HYDROCHLORIDE
     Route: 048
  3. XARELTO [Suspect]
     Active Substance: RIVAROXABAN
     Indication: CEREBROVASCULAR ACCIDENT PROPHYLAXIS
     Route: 048
     Dates: start: 201702
  4. GLUCOSAMINE [Concomitant]
     Active Substance: GLUCOSAMINE
     Route: 048
  5. FLONASE [Concomitant]
     Active Substance: FLUTICASONE PROPIONATE
     Dosage: DOSAGE TEXT: 50 MCG/ACT SUPENSION, 1 PUFF IN EACH NOSTRIL NASALLY ONCE A DAY
     Route: 065
     Dates: start: 20171002
  6. ZYRTEC [Concomitant]
     Active Substance: CETIRIZINE HYDROCHLORIDE
     Dosage: DOSAGE: 1 TABLET AS NEEDED ORALLY ONCE A DAY
     Route: 048
     Dates: start: 20160609
  7. METFORMIN HCL [Concomitant]
     Active Substance: METFORMIN HYDROCHLORIDE
     Route: 048
     Dates: start: 20161212
  8. TRAMADOL HCL [Concomitant]
     Active Substance: TRAMADOL HYDROCHLORIDE
     Dosage: DOSAGE: HALF TABLET ONCE A DAY
     Route: 048
  9. FISH OIL [Concomitant]
     Active Substance: FISH OIL
     Route: 048
  10. COREG [Concomitant]
     Active Substance: CARVEDILOL
     Dosage: DOSAGE: 1 TABLET SUBLINGUAL EVERY 5 MIN X 3
     Route: 048
     Dates: start: 20161212
  11. AMIODARONE [Concomitant]
     Active Substance: AMIODARONE
     Dosage: DOSAGE: 200 (UNITS UNSPECIFIED)
     Route: 048
  12. LOTRISONE [Concomitant]
     Active Substance: BETAMETHASONE DIPROPIONATE\CLOTRIMAZOLE
     Dosage: DOSAGE: 1-0.05 % CREAM, APPLICATION TO AFFECTED AREA EXTERNALLY.
     Route: 061
     Dates: start: 20170601
  13. COENZYME Q10 [Concomitant]
     Active Substance: UBIDECARENONE
     Route: 048
  14. BUMEX [Concomitant]
     Active Substance: BUMETANIDE
     Dosage: DOSAGE: ONE TABLET ONCE A DAY OR AS NECESSARY
     Route: 048
     Dates: start: 20170605
  15. XARELTO [Suspect]
     Active Substance: RIVAROXABAN
     Indication: ATRIAL FIBRILLATION
     Route: 048
     Dates: start: 201702
  16. LISINOPRIL. [Concomitant]
     Active Substance: LISINOPRIL
     Route: 048
  17. VITAMIN D [Concomitant]
     Active Substance: CHOLECALCIFEROL
     Route: 048
     Dates: start: 20141007
  18. OMEPRAZOLE. [Concomitant]
     Active Substance: OMEPRAZOLE
     Route: 048

REACTIONS (1)
  - Brain stem stroke [Recovering/Resolving]

NARRATIVE: CASE EVENT DATE: 20171121
